FAERS Safety Report 15515072 (Version 5)
Quarter: 2019Q2

REPORT INFORMATION
  Report Type: Report from Study
  Country: HU (occurrence: HU)
  Receive Date: 20181017
  Receipt Date: 20190605
  Transmission Date: 20190711
  Serious: Yes (Hospitalization)
  Sender: FDA-Public Use
  Company Number: HU-ROCHE-2197910

PATIENT
  Age: 63 Year
  Sex: Male
  Weight: 65 kg

DRUGS (22)
  1. ATEZOLIZUMAB. [Suspect]
     Active Substance: ATEZOLIZUMAB
     Indication: MALIGNANT MELANOMA
     Dosage: DATE OF MOST RECENT DOSE OF ATEZOLIZUMAB PRIOR TO AE ONSET: 25/SEP/2018
     Route: 042
     Dates: start: 20180925
  2. ZINDACLIN [Concomitant]
     Route: 062
     Dates: start: 20181005
  3. ACETYLSALICYLIC ACID [Concomitant]
     Active Substance: ASPIRIN
     Indication: MYOCARDIAL ISCHAEMIA
     Route: 048
     Dates: start: 20171026
  4. ROSUVASTATIN. [Concomitant]
     Active Substance: ROSUVASTATIN
     Indication: MYOCARDIAL ISCHAEMIA
     Route: 048
     Dates: start: 20171026, end: 20181120
  5. ALGOPYRIN [METAMIZOLE SODIUM] [Concomitant]
     Route: 048
     Dates: start: 20181011, end: 20181111
  6. LOPEDIUM [Concomitant]
     Active Substance: LOPERAMIDE
     Indication: DIARRHOEA
     Route: 048
     Dates: start: 20181011, end: 20181014
  7. CREMOR REFRIGERANS [Concomitant]
     Indication: ACNE
     Route: 062
     Dates: start: 20181015
  8. COBIMETINIB. [Suspect]
     Active Substance: COBIMETINIB
     Indication: MALIGNANT MELANOMA
     Dosage: MOST RECENT DOSE OF COBIMETINIB (60 MG; FREQUENCY: OTHER): 09/OCT/2018
     Route: 048
     Dates: start: 20180925
  9. PERINDOPRIL [Concomitant]
     Active Substance: PERINDOPRIL
     Indication: MYOCARDIAL ISCHAEMIA
     Route: 048
     Dates: start: 20171026, end: 20181015
  10. MAGNESIUM OROTATE [Concomitant]
     Indication: MYOCARDIAL ISCHAEMIA
     Route: 048
     Dates: start: 20170926
  11. KALIUM-R [Concomitant]
     Indication: HYPOKALAEMIA
     Route: 048
     Dates: start: 20181010
  12. CLOPIDOGREL [Concomitant]
     Active Substance: CLOPIDOGREL BISULFATE
     Indication: MYOCARDIAL ISCHAEMIA
     Route: 048
     Dates: start: 20171026
  13. ALGOPYRIN [METAMIZOLE SODIUM] [Concomitant]
     Route: 048
     Dates: start: 20181008, end: 20181008
  14. CALCIUM CITRATE [Concomitant]
     Active Substance: CALCIUM CITRATE
     Indication: HYPOCALCAEMIA
     Route: 048
     Dates: start: 20181011
  15. NEBIVOLOL. [Concomitant]
     Active Substance: NEBIVOLOL
     Indication: MYOCARDIAL ISCHAEMIA
     Route: 048
     Dates: start: 20171026
  16. TRIMETAZIDIN [Concomitant]
     Active Substance: TRIMETAZIDINE
     Indication: MYOCARDIAL ISCHAEMIA
     Route: 048
     Dates: start: 20171026
  17. ALGOPYRIN [METAMIZOLE SODIUM] [Concomitant]
     Indication: PYREXIA
     Route: 048
     Dates: start: 20181007, end: 20181007
  18. CITROKALCIUM [Concomitant]
     Route: 048
     Dates: start: 20181011
  19. PANADOL [Concomitant]
     Active Substance: ACETAMINOPHEN
     Indication: PYREXIA
     Route: 048
     Dates: start: 20181009, end: 20181009
  20. KLION [METRONIDAZOLE] [Concomitant]
     Active Substance: METRONIDAZOLE
     Indication: ACNE
     Route: 048
     Dates: start: 20181008, end: 20181017
  21. POTASSIUM CHLORIDE. [Concomitant]
     Active Substance: POTASSIUM CHLORIDE
     Indication: HYPOKALAEMIA
     Route: 048
     Dates: start: 20181010, end: 20181109
  22. ZINDACLIN [Concomitant]
     Indication: ACNE
     Route: 062
     Dates: start: 20180905

REACTIONS (1)
  - Blood creatine phosphokinase increased [Recovered/Resolved]

NARRATIVE: CASE EVENT DATE: 20181009
